FAERS Safety Report 8510312-8 (Version None)
Quarter: 2012Q3

REPORT INFORMATION
  Report Type: 
  Country: None (occurrence: None)
  Receive Date: 20120713
  Receipt Date: 20120629
  Transmission Date: 20120928
  Serious: Yes (Hospitalization, Other)
  Sender: FDA-Public Use
  Company Number: CHPA2012US014770

PATIENT
  Age: 78 Year
  Sex: Female

DRUGS (1)
  1. BENEFIBER W/ WHEAT DEXTRIN [Suspect]
     Indication: SUPPLEMENTATION THERAPY
     Dosage: 1 TSP, TID
     Route: 048

REACTIONS (9)
  - NODULE [None]
  - INFECTION [None]
  - EATING DISORDER [None]
  - FALL [None]
  - LIMB INJURY [None]
  - FLATULENCE [None]
  - MALAISE [None]
  - SKIN DISCOLOURATION [None]
  - UNDERDOSE [None]
